FAERS Safety Report 8610539-0 (Version None)
Quarter: 2012Q3

REPORT INFORMATION
  Report Type: 
  Country: None (occurrence: None)
  Receive Date: 20120808
  Receipt Date: 20120725
  Transmission Date: 20120928
  Serious: Yes (Other)
  Sender: FDA-Public Use
  Company Number: JPI-P-023289

PATIENT
  Age: 54 Year
  Sex: Female

DRUGS (2)
  1. XYREM [Suspect]
     Indication: SLEEP DISORDER
     Dosage: SEE IMAGE
     Route: 048
     Dates: start: 20120327, end: 20120101
  2. XYREM [Suspect]
     Indication: SLEEP DISORDER
     Dosage: SEE IMAGE
     Route: 048
     Dates: start: 20071126

REACTIONS (2)
  - PAIN [None]
  - KNEE ARTHROPLASTY [None]
